FAERS Safety Report 15150418 (Version 1)
Quarter: 2018Q3

REPORT INFORMATION
  Report Type: Spontaneous
  Country: CH (occurrence: CH)
  Receive Date: 20180716
  Receipt Date: 20180716
  Transmission Date: 20181010
  Serious: Yes (Other)
  Sender: FDA-Public Use
  Company Number: CH-GILEAD-2018-0349716

PATIENT
  Sex: Female

DRUGS (1)
  1. ZYDELIG [Suspect]
     Active Substance: IDELALISIB
     Indication: CHRONIC LYMPHOCYTIC LEUKAEMIA
     Dosage: 150 UNK, UNK
     Route: 048
     Dates: start: 20180416, end: 20180709

REACTIONS (3)
  - Angina pectoris [Unknown]
  - Dyspnoea [Unknown]
  - Pneumonitis [Unknown]
